FAERS Safety Report 24170814 (Version 1)
Quarter: 2024Q3

REPORT INFORMATION
  Report Type: Spontaneous
  Country: US (occurrence: None)
  Receive Date: 20240802
  Receipt Date: 20240802
  Transmission Date: 20241017
  Serious: No
  Sender: Public
  Company Number: None

PATIENT
  Age: 31 Year
  Sex: Female
  Weight: 103.5 kg

DRUGS (2)
  1. HYDROXYZINE PAMOATE [Suspect]
     Active Substance: HYDROXYZINE PAMOATE
     Indication: Anxiety
     Dosage: 15 CAPSULES 3 TIMES A DAY ORAL
     Route: 048
     Dates: start: 20240731, end: 20240731
  2. SERTRALINE [Concomitant]

REACTIONS (9)
  - Somnolence [None]
  - Motor dysfunction [None]
  - Gait disturbance [None]
  - Feeling drunk [None]
  - Impaired work ability [None]
  - Feeling abnormal [None]
  - Euphoric mood [None]
  - Decreased appetite [None]
  - Impaired driving ability [None]

NARRATIVE: CASE EVENT DATE: 20240731
